FAERS Safety Report 5332985-3 (Version None)
Quarter: 2007Q1

REPORT INFORMATION
  Report Type: 
  Country: None (occurrence: None)
  Receive Date: 20070306
  Receipt Date: 20061016
  Transmission Date: 20070707
  Serious: Yes (Death)
  Sender: FDA-Public Use
  Company Number: A03200606291

PATIENT
  Sex: Male

DRUGS (1)
  1. PLAVIX [Suspect]
     Dosage: ORAL

REACTIONS (2)
  - LOSS OF CONSCIOUSNESS [None]
  - POST PROCEDURAL HAEMORRHAGE [None]
